FAERS Safety Report 8770332 (Version 2)
Quarter: 2013Q3

REPORT INFORMATION
  Report Type: Report from Study
  Country: CZ (occurrence: CZ)
  Receive Date: 20120906
  Receipt Date: 20130815
  Transmission Date: 20140515
  Serious: Yes (Death, Life-Threatening)
  Sender: FDA-Public Use
  Company Number: CZ-BAYER-2012-090268

PATIENT
  Age: 63 Year
  Sex: Male

DRUGS (3)
  1. NEXAVAR [Suspect]
     Indication: RENAL CANCER
     Dosage: 400 MG, QD
     Route: 048
     Dates: start: 20110716, end: 20110812
  2. NEXAVAR [Suspect]
     Indication: RENAL CANCER
     Dosage: 800 MG, QD
     Route: 048
     Dates: start: 20110813, end: 20120508
  3. NEXAVAR [Suspect]
     Indication: RENAL CANCER
     Dosage: 400 MG, QD
     Route: 048
     Dates: start: 20120519, end: 20120803

REACTIONS (2)
  - Renal cancer [Fatal]
  - Hypoglycaemia [None]
